FAERS Safety Report 25699749 (Version 1)
Quarter: 2025Q3

REPORT INFORMATION
  Report Type: Spontaneous
  Country: US (occurrence: US)
  Receive Date: 20250819
  Receipt Date: 20250819
  Transmission Date: 20251020
  Serious: Yes (Death, Other)
  Sender: AMGEN
  Company Number: US-AMGEN-USASP2025159425

PATIENT

DRUGS (6)
  1. BEVACIZUMAB [Suspect]
     Active Substance: BEVACIZUMAB
     Indication: Hepatocellular carcinoma
     Dosage: 7.5 MILLIGRAM/KILOGRAM, Q3WK (ON DAY 1 OF CYCLE 2 ) (CONTINUED IN 3-WEEK CYCLES)
     Route: 040
  2. BEVACIZUMAB [Suspect]
     Active Substance: BEVACIZUMAB
     Indication: Bile duct cancer
  3. DURVALUMAB [Suspect]
     Active Substance: DURVALUMAB
     Indication: Hepatocellular carcinoma
     Dosage: 1150 MILLIGRAM, Q3WK (ON DAY 1 OF CYCLE 1 ) (CONTINUED IN 3-WEEK CYCLES)
     Route: 040
  4. DURVALUMAB [Suspect]
     Active Substance: DURVALUMAB
     Indication: Bile duct cancer
  5. TREMELIMUMAB [Suspect]
     Active Substance: TREMELIMUMAB
     Indication: Hepatocellular carcinoma
     Route: 040
  6. TREMELIMUMAB [Suspect]
     Active Substance: TREMELIMUMAB
     Indication: Bile duct cancer

REACTIONS (7)
  - Upper gastrointestinal haemorrhage [Fatal]
  - Colitis [Unknown]
  - Lipase increased [Unknown]
  - Anaemia [Unknown]
  - Lymphopenia [Unknown]
  - Diarrhoea [Unknown]
  - Drug effective for unapproved indication [Unknown]
